FAERS Safety Report 10971709 (Version 14)
Quarter: 2018Q2

REPORT INFORMATION
  Report Type: Report from Study
  Country: BR (occurrence: BR)
  Receive Date: 20150331
  Receipt Date: 20180517
  Transmission Date: 20180711
  Serious: Yes (Hospitalization, Other)
  Sender: FDA-Public Use
  Company Number: PHHY2015BR036141

PATIENT
  Sex: Male
  Weight: 64 kg

DRUGS (6)
  1. INTERFERON ALFA NOS [Suspect]
     Active Substance: INTERFERON ALFA-2A OR INTERFERON ALFA-2B
     Indication: LIVER DISORDER
     Dosage: UNK (MON, WED AND FRI)
     Route: 058
  2. SANDOSTATIN LAR DEPOT [Suspect]
     Active Substance: OCTREOTIDE ACETATE
     Indication: HEPATIC NEOPLASM
     Dosage: 30 MG, QMO (ONCE A MONTH)
     Route: 030
     Dates: start: 2014
  3. SANDOSTATIN LAR DEPOT [Suspect]
     Active Substance: OCTREOTIDE ACETATE
     Indication: COLON CANCER
  4. SANDOSTATIN LAR DEPOT [Suspect]
     Active Substance: OCTREOTIDE ACETATE
     Indication: NEUROENDOCRINE TUMOUR
  5. FUROSEMIDE. [Concomitant]
     Active Substance: FUROSEMIDE
     Indication: PRODUCT USED FOR UNKNOWN INDICATION
     Route: 065
  6. PURAN [Concomitant]
     Active Substance: LEVOTHYROXINE SODIUM
     Indication: THYROID DISORDER
     Route: 065

REACTIONS (38)
  - Cardiac disorder [Not Recovered/Not Resolved]
  - Lung disorder [Unknown]
  - Pneumonitis [Unknown]
  - Cardiac failure [Recovering/Resolving]
  - Gait disturbance [Unknown]
  - Pain [Unknown]
  - Malaise [Recovering/Resolving]
  - Heart rate irregular [Not Recovered/Not Resolved]
  - Dizziness [Not Recovered/Not Resolved]
  - Atrioventricular block [Unknown]
  - Malignant neoplasm progression [Unknown]
  - Arrhythmia [Not Recovered/Not Resolved]
  - Agitation [Unknown]
  - Back pain [Recovering/Resolving]
  - Swelling [Unknown]
  - Vein wall hypertrophy [Unknown]
  - Weight fluctuation [Unknown]
  - Memory impairment [Unknown]
  - Hyperhidrosis [Unknown]
  - Cardiomegaly [Not Recovered/Not Resolved]
  - Pulmonary oedema [Recovering/Resolving]
  - Dysstasia [Unknown]
  - Extrasystoles [Not Recovered/Not Resolved]
  - Eating disorder [Unknown]
  - Vein disorder [Unknown]
  - Liver disorder [Unknown]
  - Abdominal mass [Unknown]
  - Peripheral swelling [Not Recovered/Not Resolved]
  - Muscle spasms [Recovering/Resolving]
  - Fatigue [Unknown]
  - Asthenia [Unknown]
  - Weight decreased [Recovered/Resolved]
  - Chest pain [Recovering/Resolving]
  - Dyspnoea [Recovering/Resolving]
  - Swelling face [Recovering/Resolving]
  - Tinnitus [Not Recovered/Not Resolved]
  - Abdominal pain [Not Recovered/Not Resolved]
  - Abdominal pain upper [Recovering/Resolving]

NARRATIVE: CASE EVENT DATE: 2013
